FAERS Safety Report 10476411 (Version 1)
Quarter: 2014Q3

REPORT INFORMATION
  Report Type: Spontaneous
  Country: US (occurrence: US)
  Receive Date: 20140925
  Receipt Date: 20140925
  Transmission Date: 20150326
  Serious: Yes (Death, Other)
  Sender: FDA-Public Use
  Company Number: US-ABBVIE-14P-163-1287315-00

PATIENT
  Age: 42 Year
  Sex: Male

DRUGS (3)
  1. ANDROGEL [Suspect]
     Active Substance: TESTOSTERONE
     Indication: BLOOD TESTOSTERONE DECREASED
     Dates: start: 20111006, end: 201202
  2. ANDROGEL [Suspect]
     Active Substance: TESTOSTERONE
     Indication: BLOOD TESTOSTERONE DECREASED
     Dates: start: 201202, end: 201205
  3. ANDROGEL [Suspect]
     Active Substance: TESTOSTERONE
     Dates: start: 201205, end: 20120928

REACTIONS (5)
  - Pain [Fatal]
  - Injury [Fatal]
  - Cardiac disorder [Fatal]
  - Acute coronary syndrome [Fatal]
  - Anxiety [Fatal]

NARRATIVE: CASE EVENT DATE: 20120927
